FAERS Safety Report 9919402 (Version 1)
Quarter: 2014Q1

REPORT INFORMATION
  Report Type: Report from Study
  Country: RU (occurrence: RU)
  Receive Date: 20140224
  Receipt Date: 20140224
  Transmission Date: 20141002
  Serious: Yes (Other)
  Sender: FDA-Public Use
  Company Number: RU-US-EMD SERONO, INC.-7254422

PATIENT
  Age: 25 Year
  Sex: Female

DRUGS (4)
  1. GONAL-F [Suspect]
     Indication: IN VITRO FERTILISATION
  2. CETROTIDE (CETRORELIX ACETATE FOR INJECTION) [Suspect]
     Indication: IN VITRO FERTILISATION
     Dosage: 0.25 MG TOTALLY 5 VIALS PER CYCLE, STARTED ON 7TH CYCLE DAY
  3. CRINONE [Suspect]
     Indication: PREGNANCY
  4. DIPHERELINE                        /00975901/ [Suspect]
     Indication: IN VITRO FERTILISATION
     Dosage: SINGLE ADMINISTRATION STARTED ON 11TH CYCLE DAY

REACTIONS (1)
  - Foetal growth restriction [Unknown]
